FAERS Safety Report 25015862 (Version 1)
Quarter: 2025Q1

REPORT INFORMATION
  Report Type: Spontaneous
  Country: US (occurrence: US)
  Receive Date: 20250227
  Receipt Date: 20250227
  Transmission Date: 20250409
  Serious: No
  Sender: AMNEAL
  Company Number: US-AMNEAL PHARMACEUTICALS-2024-AMRX-04217

PATIENT
  Age: 70 Year
  Sex: Female
  Weight: 72.562 kg

DRUGS (1)
  1. CREXONT [Suspect]
     Active Substance: CARBIDOPA\LEVODOPA
     Indication: Product used for unknown indication
     Dosage: 7 CAPSULES, DAILY (2 CAPSULES IN MORNING, 2 CAPSULES AT 11 :30 AM, 2 CAPSULES AT 1 :00 PM , 1 CAPSUL
     Route: 048
     Dates: start: 20241105

REACTIONS (2)
  - Tremor [Not Recovered/Not Resolved]
  - Dyskinesia [Not Recovered/Not Resolved]

NARRATIVE: CASE EVENT DATE: 20241105
